FAERS Safety Report 7152862-5 (Version None)
Quarter: 2010Q4

REPORT INFORMATION
  Report Type: 
  Country: None (occurrence: None)
  Receive Date: 20101213
  Receipt Date: 20101207
  Transmission Date: 20110411
  Serious: Yes (Life-Threatening, Hospitalization)
  Sender: FDA-Public Use
  Company Number: PHHY2010US75596

PATIENT
  Sex: Female
  Weight: 54.5 kg

DRUGS (6)
  1. RECLAST [Suspect]
     Indication: OSTEOPOROSIS
     Dosage: 5 MG
     Route: 042
     Dates: start: 20101001
  2. RECLAST [Suspect]
     Dosage: 5 MG
     Route: 042
     Dates: start: 20101004
  3. XYZAL [Concomitant]
     Indication: RHINITIS ALLERGIC
     Dosage: 5 MG PER DAY
     Route: 048
  4. NEXIUM [Concomitant]
     Indication: GASTROOESOPHAGEAL REFLUX DISEASE
     Dosage: 40 MG PER DAY
  5. IBUPROFEN [Concomitant]
     Indication: OSTEOARTHRITIS
     Dosage: UNK
     Route: 048
  6. MULTI-VITAMINS [Concomitant]
     Dosage: UNK
     Route: 048

REACTIONS (6)
  - CHEST PAIN [None]
  - DYSPNOEA [None]
  - FATIGUE [None]
  - INFLUENZA LIKE ILLNESS [None]
  - PAIN [None]
  - PULMONARY EMBOLISM [None]
